FAERS Safety Report 7572273-8 (Version None)
Quarter: 2011Q2

REPORT INFORMATION
  Report Type: 
  Country: None (occurrence: None)
  Receive Date: 20110624
  Receipt Date: 20110616
  Transmission Date: 20111010
  Serious: Yes (Hospitalization)
  Sender: FDA-Public Use
  Company Number: PHHO2011FR10476

PATIENT
  Sex: Male
  Weight: 81 kg

DRUGS (8)
  1. SANDIMMUNE [Suspect]
     Indication: RENAL TRANSPLANT
     Dosage: 3.5 MG
     Route: 048
     Dates: start: 20110522, end: 20110608
  2. CELLCEPT [Suspect]
     Indication: RENAL TRANSPLANT
     Dosage: 2 G
     Route: 048
     Dates: start: 20110528
  3. CELLCEPT [Suspect]
     Dosage: 1 G
     Route: 048
     Dates: start: 20110615
  4. CELLCEPT [Suspect]
     Dosage: 1.5 G
     Route: 048
     Dates: start: 20110614, end: 20110614
  5. PREDNISOLONE [Suspect]
     Indication: RENAL TRANSPLANT
     Dosage: 10 MG, UNK
     Route: 048
     Dates: start: 20110519
  6. TENORMIN [Concomitant]
     Dosage: 25 MG, UNK
     Route: 048
     Dates: start: 20110606
  7. CELLCEPT [Suspect]
     Dosage: 500 MG
     Route: 048
     Dates: start: 20110613, end: 20110613
  8. PROGRAF [Suspect]
     Dosage: 6 MG
     Route: 048
     Dates: start: 20110609

REACTIONS (2)
  - RENAL IMPAIRMENT [None]
  - NEUTROPENIA [None]
